FAERS Safety Report 21578981 (Version 2)
Quarter: 2022Q4

REPORT INFORMATION
  Report Type: Spontaneous
  Country: BR (occurrence: BR)
  Receive Date: 20221110
  Receipt Date: 20221117
  Transmission Date: 20230113
  Serious: Yes (Other)
  Sender: FDA-Public Use
  Company Number: BR-UCBSA-2022064399

PATIENT
  Age: 38 Year
  Sex: Female

DRUGS (4)
  1. KEPPRA XR [Suspect]
     Active Substance: LEVETIRACETAM
     Indication: Product used for unknown indication
     Dosage: 750 MILLIGRAM, ONCE DAILY (QD)
     Dates: start: 20220201, end: 20221015
  2. PURAN [Concomitant]
     Active Substance: LEVOTHYROXINE SODIUM
     Indication: Thyroid disorder
     Dosage: UNK
     Route: 065
  3. MIRENA [Concomitant]
     Active Substance: LEVONORGESTREL
     Indication: Contraception
     Dosage: UNK
  4. TEGRETOL [Concomitant]
     Active Substance: CARBAMAZEPINE
     Indication: Product used for unknown indication
     Dosage: UNK

REACTIONS (4)
  - Personality change [Recovering/Resolving]
  - Suicidal ideation [Recovering/Resolving]
  - Intentional self-injury [Recovering/Resolving]
  - Panic disorder [Recovering/Resolving]

NARRATIVE: CASE EVENT DATE: 20221008
